FAERS Safety Report 4584599-0 (Version None)
Quarter: 2005Q1

REPORT INFORMATION
  Report Type: 
  Country: None (occurrence: None)
  Receive Date: 20050216
  Receipt Date: 20041027
  Transmission Date: 20050727
  Serious: Yes (Hospitalization)
  Sender: FDA-Public Use
  Company Number: DE-MERCK-0410DEU00757

PATIENT
  Age: 82 Year
  Sex: Female

DRUGS (6)
  1. VIOXX [Suspect]
     Indication: HEADACHE
     Route: 048
     Dates: end: 20030101
  2. VIOXX [Suspect]
     Indication: BACK PAIN
     Route: 048
     Dates: end: 20030101
  3. SOTALOL HYDROCHLORIDE [Concomitant]
     Route: 065
     Dates: end: 20030901
  4. QUINAPRIL HYDROCHLORIDE [Concomitant]
     Route: 065
  5. MOLSIDOMINE [Concomitant]
     Route: 065
  6. XIPAMIDE [Concomitant]
     Route: 065

REACTIONS (8)
  - ANGINA UNSTABLE [None]
  - CEREBRAL INFARCTION [None]
  - COLONIC POLYP [None]
  - EMBOLIC CEREBRAL INFARCTION [None]
  - EMBOLISM [None]
  - HYPERTENSIVE HEART DISEASE [None]
  - MELAENA [None]
  - PALPITATIONS [None]
